FAERS Safety Report 18344608 (Version 1)
Quarter: 2020Q4

REPORT INFORMATION
  Report Type: Spontaneous
  Country: US (occurrence: US)
  Receive Date: 20201005
  Receipt Date: 20201005
  Transmission Date: 20210114
  Serious: No
  Sender: FDA-Public Use
  Company Number: None

PATIENT
  Age: 66 Year
  Sex: Female

DRUGS (1)
  1. JAKAFI [Suspect]
     Active Substance: RUXOLITINIB
     Route: 048
     Dates: start: 20201001

REACTIONS (6)
  - Feeling hot [None]
  - Paraesthesia oral [None]
  - Heart rate increased [None]
  - Dizziness [None]
  - Respiratory rate increased [None]
  - Eye irritation [None]

NARRATIVE: CASE EVENT DATE: 20201001
